FAERS Safety Report 9943643 (Version 1)
Quarter: 2014Q1

REPORT INFORMATION
  Report Type: Report from Study
  Country: US (occurrence: US)
  Receive Date: 20140303
  Receipt Date: 20140303
  Transmission Date: 20141002
  Serious: No
  Sender: FDA-Public Use
  Company Number: US-ABBVIE-13P-163-1047838-00

PATIENT
  Age: 49 Year
  Sex: Female

DRUGS (8)
  1. HUMIRA [Suspect]
     Indication: COLITIS ULCERATIVE
     Route: 058
     Dates: start: 20121104, end: 20130113
  2. AMITRIPTYLINE [Concomitant]
     Indication: PAIN MANAGEMENT
     Dosage: DAILY
  3. AMITRIPTYLINE [Concomitant]
     Indication: DEPRESSION
  4. AMITRIPTYLINE [Concomitant]
     Indication: SLEEP DISORDER THERAPY
  5. LEVOTHYROXINE [Concomitant]
     Indication: THYROID DISORDER
     Dosage: DAILY
  6. FLAGYL [Concomitant]
     Indication: GASTROINTESTINAL DISORDER
  7. CYMBALTA [Concomitant]
     Indication: DEPRESSION
  8. TYLENOL [Concomitant]
     Indication: PAIN

REACTIONS (1)
  - Gastric disorder [Not Recovered/Not Resolved]
